FAERS Safety Report 21978440 (Version 3)
Quarter: 2023Q1

REPORT INFORMATION
  Report Type: Spontaneous
  Country: US (occurrence: US)
  Receive Date: 20230210
  Receipt Date: 20230221
  Transmission Date: 20230418
  Serious: No
  Sender: FDA-Public Use
  Company Number: US-PFIZER INC-202300060737

PATIENT
  Age: 59 Year
  Sex: Female
  Weight: 68.04 kg

DRUGS (1)
  1. PAXLOVID [Suspect]
     Active Substance: NIRMATRELVIR\RITONAVIR
     Indication: COVID-19 treatment
     Dosage: UNK
     Dates: start: 20230204

REACTIONS (15)
  - Nausea [Unknown]
  - Pain [Unknown]
  - Insomnia [Unknown]
  - Paraesthesia [Recovered/Resolved]
  - Musculoskeletal discomfort [Recovered/Resolved]
  - Rash [Unknown]
  - Erythema [Unknown]
  - Flushing [Unknown]
  - Neck pain [Unknown]
  - Ear pain [Unknown]
  - Headache [Unknown]
  - Feeling abnormal [Unknown]
  - Rash macular [Unknown]
  - COVID-19 [Not Recovered/Not Resolved]
  - Disease recurrence [Not Recovered/Not Resolved]

NARRATIVE: CASE EVENT DATE: 20230201
